FAERS Safety Report 19073802 (Version 2)
Quarter: 2021Q2

REPORT INFORMATION
  Report Type: Report from Study
  Country: MX (occurrence: MX)
  Receive Date: 20210330
  Receipt Date: 20210422
  Transmission Date: 20210717
  Serious: Yes (Death)
  Sender: FDA-Public Use
  Company Number: NVSC2021MX071952

PATIENT
  Sex: Male
  Weight: 179 kg

DRUGS (1)
  1. ULTIBRO BREEZHALER [Suspect]
     Active Substance: GLYCOPYRRONIUM\INDACATEROL
     Indication: PULMONARY FIBROSIS
     Dosage: 1 DF, QD
     Route: 055
     Dates: start: 20210318

REACTIONS (3)
  - Illness [Unknown]
  - Product use in unapproved indication [Unknown]
  - Death [Fatal]
